FAERS Safety Report 5592412-8 (Version None)
Quarter: 2008Q1

REPORT INFORMATION
  Report Type: 
  Country: None (occurrence: None)
  Receive Date: 20080115
  Receipt Date: 20080103
  Transmission Date: 20080703
  Serious: No
  Sender: FDA-Public Use
  Company Number: IE-PFIZER INC-2007095559

PATIENT
  Age: 50 Year
  Sex: Male

DRUGS (4)
  1. SUTENT [Suspect]
     Indication: METASTATIC RENAL CELL CARCINOMA
     Route: 048
  2. ACE INHIBITOR NOS [Concomitant]
  3. RAMIPRIL [Concomitant]
  4. ISTIN [Concomitant]

REACTIONS (1)
  - ARTHRALGIA [None]
